FAERS Safety Report 7465632-5 (Version None)
Quarter: 2011Q2

REPORT INFORMATION
  Report Type: 
  Country: None (occurrence: None)
  Receive Date: 20110509
  Receipt Date: 20090716
  Transmission Date: 20111010
  Serious: Yes (Other)
  Sender: FDA-Public Use
  Company Number: A0797331A

PATIENT
  Age: 59 Year
  Sex: Female

DRUGS (6)
  1. METOPROLOL TARTRATE [Concomitant]
  2. VITAMIN D [Concomitant]
  3. SUPPLEMENT [Concomitant]
  4. RYTHMOL SR [Suspect]
     Indication: ATRIAL FIBRILLATION
     Dosage: 325MG TWICE PER DAY
     Route: 048
     Dates: start: 20041201
  5. FISH OIL [Concomitant]
  6. SUPPLEMENT [Concomitant]

REACTIONS (7)
  - WEIGHT INCREASED [None]
  - ALOPECIA [None]
  - DRUG INEFFECTIVE [None]
  - DIZZINESS [None]
  - ATRIAL FIBRILLATION [None]
  - DYSGEUSIA [None]
  - COGNITIVE DISORDER [None]
